FAERS Safety Report 16410323 (Version 1)
Quarter: 2019Q2

REPORT INFORMATION
  Report Type: Report from Study
  Country: MX (occurrence: MX)
  Receive Date: 20190610
  Receipt Date: 20190610
  Transmission Date: 20190711
  Serious: Yes (Hospitalization)
  Sender: FDA-Public Use
  Company Number: MX-TAKEDA-2019TUS036320

PATIENT
  Age: 60 Year
  Sex: Male

DRUGS (2)
  1. BRIGATINIB [Suspect]
     Active Substance: BRIGATINIB
     Indication: NON-SMALL CELL LUNG CANCER
     Dosage: 180 MILLIGRAM
     Route: 048
  2. BRIGATINIB [Suspect]
     Active Substance: BRIGATINIB
     Dosage: 180 MILLIGRAM, QD
     Route: 065

REACTIONS (3)
  - Abdominal pain [Recovered/Resolved]
  - Acid peptic disease [Recovered/Resolved]
  - Lipase increased [Not Recovered/Not Resolved]
